FAERS Safety Report 10184950 (Version 1)
Quarter: 2014Q2

REPORT INFORMATION
  Report Type: Spontaneous
  Country: VE (occurrence: VE)
  Receive Date: 20140521
  Receipt Date: 20140521
  Transmission Date: 20141212
  Serious: Yes (Hospitalization)
  Sender: FDA-Public Use
  Company Number: VE-009507513-1405VEN010428

PATIENT
  Age: 41 Year
  Sex: Male

DRUGS (1)
  1. VORINOSTAT [Suspect]
     Indication: MYCOSIS FUNGOIDES
     Dosage: UNK
     Route: 048

REACTIONS (6)
  - Herpes zoster disseminated [Unknown]
  - Treatment failure [Unknown]
  - Lymphadenopathy [Unknown]
  - Tumour haemorrhage [Unknown]
  - Chest discomfort [Unknown]
  - Respiratory distress [Unknown]
